FAERS Safety Report 8962833 (Version 1)
Quarter: 2012Q4

REPORT INFORMATION
  Report Type: 
  Country: US (occurrence: US)
  Receive Date: 20121213
  Receipt Date: 20121213
  Transmission Date: 20130627
  Serious: Yes (Hospitalization)
  Sender: FDA-Public Use
  Company Number: US-BAYER-2012-129816

PATIENT
  Age: 32 Year
  Sex: Female
  Weight: 132.79 kg

DRUGS (9)
  1. YASMIN [Suspect]
     Indication: ACNE
  2. YASMIN [Suspect]
     Indication: DYSMENORRHEA
  3. YASMIN [Suspect]
     Indication: PREMENSTRUAL DYSPHORIC DISORDER
  4. ZOLOFT [Concomitant]
     Indication: DEPRESSION
     Dosage: 50 to 100 mg every day
     Route: 048
  5. SOMA [Concomitant]
     Dosage: 350mg q pm (interpreted as every evening)
     Route: 048
  6. IBUPROFEN [Concomitant]
     Dosage: 200 mg, PRN
     Route: 048
  7. LYRICA [Concomitant]
     Dosage: 75 mg, 2-3 tabs every night
     Route: 048
  8. NORCO [Concomitant]
     Dosage: 5-325mg daily to twice daily prn
     Route: 048
  9. SAVELLA [Concomitant]
     Dosage: 25 mg, ? tab daily [times]
     Route: 048

REACTIONS (2)
  - Pulmonary embolism [None]
  - Deep vein thrombosis [None]
